FAERS Safety Report 22230226 (Version 1)
Quarter: 2023Q2

REPORT INFORMATION
  Report Type: Spontaneous
  Country: US (occurrence: US)
  Receive Date: 20230419
  Receipt Date: 20230419
  Transmission Date: 20230722
  Serious: No
  Sender: FDA-Public Use
  Company Number: US-JNJFOC-20230378381

PATIENT
  Sex: Male

DRUGS (6)
  1. MENS ROGAINE EXTRA STRENGTH [Suspect]
     Active Substance: MINOXIDIL
     Indication: Alopecia
     Dosage: DOSE: 1 ML ONCE A DAY 5 DAYS A WEEK
     Route: 061
  2. MENS ROGAINE EXTRA STRENGTH [Suspect]
     Active Substance: MINOXIDIL
     Indication: Accidental exposure to product
     Dosage: DOSE: 1 ML INITIALLY 7 DAYS A WEEK
     Route: 061
  3. MENS ROGAINE EXTRA STRENGTH [Suspect]
     Active Substance: MINOXIDIL
     Indication: Alopecia
     Dosage: DOSE: SOMETIMES USED 1/2 CAPFUL, BUT THEN LATER WOULD JUST DISPENSE IT ONTO HAND DIRECTLY 5 DAYS A W
     Route: 061
  4. MENS ROGAINE EXTRA STRENGTH [Suspect]
     Active Substance: MINOXIDIL
     Indication: Accidental exposure to product
  5. FOLIC ACID\METHYLCOBALAMIN [Concomitant]
     Active Substance: FOLIC ACID\METHYLCOBALAMIN
     Indication: Alopecia
     Route: 065
  6. PROPECIA [Concomitant]
     Active Substance: FINASTERIDE
     Indication: Alopecia
     Route: 065

REACTIONS (6)
  - Product residue present [Unknown]
  - Hair growth abnormal [Unknown]
  - Accidental exposure to product [Unknown]
  - Underdose [Unknown]
  - Inappropriate schedule of product administration [Unknown]
  - Product complaint [Unknown]
